FAERS Safety Report 14564060 (Version 1)
Quarter: 2018Q1

REPORT INFORMATION
  Report Type: Report from Study
  Country: TR (occurrence: TR)
  Receive Date: 20180222
  Receipt Date: 20180222
  Transmission Date: 20180509
  Serious: Yes (Hospitalization)
  Sender: FDA-Public Use
  Company Number: TR-EMD SERONO-9012047

PATIENT
  Sex: Female

DRUGS (4)
  1. REBIF [Suspect]
     Active Substance: INTERFERON BETA-1A
     Dosage: FOR 2 WEEKS
     Route: 058
     Dates: start: 201801
  2. REBIF [Suspect]
     Active Substance: INTERFERON BETA-1A
     Route: 058
     Dates: start: 20180214
  3. REBIF [Suspect]
     Active Substance: INTERFERON BETA-1A
     Dosage: FOR 2 WEEKS
     Route: 058
     Dates: start: 201801
  4. REBIF [Suspect]
     Active Substance: INTERFERON BETA-1A
     Indication: MULTIPLE SCLEROSIS
     Dosage: FOR 2 WEEKS
     Route: 058
     Dates: start: 20180103

REACTIONS (4)
  - Vomiting [Unknown]
  - Gait inability [Unknown]
  - Nausea [Unknown]
  - Dizziness [Unknown]

NARRATIVE: CASE EVENT DATE: 20180215
